FAERS Safety Report 14262183 (Version 1)
Quarter: 2017Q4

REPORT INFORMATION
  Report Type: Spontaneous
  Country: US (occurrence: None)
  Receive Date: 20171208
  Receipt Date: 20171208
  Transmission Date: 20180321
  Serious: Yes (Other)
  Sender: FDA-Public Use
  Company Number: None

PATIENT
  Age: 6 Year
  Sex: Male
  Weight: 26.54 kg

DRUGS (2)
  1. GUANFACINE HCL ER 2MG [Suspect]
     Active Substance: GUANFACINE HYDROCHLORIDE
     Indication: ATTENTION DEFICIT/HYPERACTIVITY DISORDER
     Dosage: 1 TAB Q AM DAILY ORAL
     Route: 048
     Dates: start: 20160428, end: 20160818
  2. GUANFACINE HCL ER 1MG [Suspect]
     Active Substance: GUANFACINE
     Indication: ATTENTION DEFICIT/HYPERACTIVITY DISORDER
     Dosage: 1 TAB Q AM DAILY ORAL
     Route: 048
     Dates: start: 20160528, end: 20160818

REACTIONS (6)
  - Condition aggravated [None]
  - Impulsive behaviour [None]
  - Disturbance in attention [None]
  - Psychomotor hyperactivity [None]
  - Product substitution issue [None]
  - Aggression [None]

NARRATIVE: CASE EVENT DATE: 20160428
